FAERS Safety Report 24125269 (Version 1)
Quarter: 2024Q3

REPORT INFORMATION
  Report Type: Spontaneous
  Country: NL (occurrence: NL)
  Receive Date: 20240723
  Receipt Date: 20240723
  Transmission Date: 20241017
  Serious: Yes (Other)
  Sender: AMGEN
  Company Number: NL-AMGEN-NLDSP2024140074

PATIENT

DRUGS (8)
  1. CARFILZOMIB [Suspect]
     Active Substance: CARFILZOMIB
     Indication: Plasma cell myeloma
     Dosage: 20 MILLIGRAM/SQ. METER, ON DAYS 1,2
     Route: 065
  2. CARFILZOMIB [Suspect]
     Active Substance: CARFILZOMIB
     Dosage: 27 MILLIGRAM/SQ. METER, ON DAYS 8, 9, 15, 16 OF CYCLE 1
     Route: 065
  3. CARFILZOMIB [Suspect]
     Active Substance: CARFILZOMIB
     Dosage: 36 MILLIGRAM/SQ. METER, ON DAYS 8, 9, 15, 16 OF CYCLE 1
     Route: 065
  4. FILGRASTIM [Suspect]
     Active Substance: FILGRASTIM
     Indication: Prophylaxis
     Dosage: UNK, (G-CSF)
     Route: 065
  5. THALIDOMIDE [Concomitant]
     Active Substance: THALIDOMIDE
     Indication: Plasma cell myeloma
     Dosage: 200 MILLIGRAM, DAYS 1 THROUGH 28 OF A 28 DAY CYCLE
     Route: 065
  6. DEXAMETHASONE [Concomitant]
     Active Substance: DEXAMETHASONE
     Indication: Plasma cell myeloma
     Dosage: 40 MILLIGRAM,ON DAYS 1, 8, 15 + 22 OF A 28 DAY CYCLE
     Route: 065
  7. MELPHALAN [Concomitant]
     Active Substance: MELPHALAN
     Indication: Plasma cell myeloma
     Dosage: 200 MILLIGRAM/SQ. METER
  8. CYCLOPHOSPHAMIDE [Concomitant]
     Active Substance: CYCLOPHOSPHAMIDE
     Indication: Plasma cell myeloma
     Dosage: 2 GRAM PER SQUARE METRE

REACTIONS (6)
  - Polyneuropathy [Unknown]
  - Gastrointestinal disorder [Unknown]
  - Rash [Unknown]
  - Tumour lysis syndrome [Unknown]
  - Deep vein thrombosis [Unknown]
  - Off label use [Unknown]
